FAERS Safety Report 7745228-8 (Version None)
Quarter: 2011Q3

REPORT INFORMATION
  Report Type: 
  Country: None (occurrence: None)
  Receive Date: 20110819
  Receipt Date: 20110707
  Transmission Date: 20111222
  Serious: No
  Sender: FDA-Public Use
  Company Number: 036825

PATIENT
  Sex: Female
  Weight: 77.3 kg

DRUGS (9)
  1. DEXAMETHASONE [Concomitant]
  2. NITROFURANTOIN [Concomitant]
  3. GLYBURIDE [Concomitant]
  4. CLONAZEPAM [Concomitant]
  5. LACOSAMIDE [Suspect]
     Indication: CONVULSION
     Dosage: (100 MG BID ORAL)
     Route: 048
     Dates: start: 20110501
  6. METHYLPHENIDATE [Concomitant]
  7. AMLODIPINE [Concomitant]
  8. LEVOXYL [Concomitant]
  9. FOSAMAX [Concomitant]

REACTIONS (4)
  - POLLAKIURIA [None]
  - URINE OUTPUT INCREASED [None]
  - EMOTIONAL DISORDER [None]
  - INSOMNIA [None]
